FAERS Safety Report 10220621 (Version 1)
Quarter: 2014Q2

REPORT INFORMATION
  Report Type: Spontaneous
  Country: US (occurrence: None)
  Receive Date: 20140605
  Receipt Date: 20140605
  Transmission Date: 20141212
  Serious: Yes (Other)
  Sender: FDA-Public Use
  Company Number: None

PATIENT
  Age: 41 Year
  Sex: Female
  Weight: 54.43 kg

DRUGS (2)
  1. FLUOXETINE 20 MG AUROBINDO [Suspect]
     Indication: ANXIETY
     Dosage: 90 PILLS?PMCE DAILY?TAKEN BY MOUTH
     Route: 048
     Dates: start: 20140529, end: 20140601
  2. FLUOXETINE 20 MG AUROBINDO [Suspect]
     Indication: DEPRESSION
     Dosage: 90 PILLS?PMCE DAILY?TAKEN BY MOUTH
     Route: 048
     Dates: start: 20140529, end: 20140601

REACTIONS (7)
  - Product substitution issue [None]
  - Rash [None]
  - Scratch [None]
  - Skin irritation [None]
  - Urticaria [None]
  - Product formulation issue [None]
  - Product contamination [None]
